FAERS Safety Report 6069799-5 (Version None)
Quarter: 2009Q1

REPORT INFORMATION
  Report Type: 
  Country: None (occurrence: None)
  Receive Date: 20090204
  Receipt Date: 20090204
  Transmission Date: 20090719
  Serious: Yes (Life-Threatening, Hospitalization, Other)
  Sender: FDA-Public Use
  Company Number: None

PATIENT
  Age: 12 Year
  Sex: Male
  Weight: 46 kg

DRUGS (2)
  1. AMOXICILLIN + CLAVULANATE POTASSIUM [Suspect]
     Indication: OROPHARYNGEAL PAIN
     Dosage: BID-TID PO
     Route: 048
     Dates: start: 20081022, end: 20081023
  2. AMOXICILLIN + CLAVULANATE POTASSIUM [Suspect]
     Indication: PYREXIA
     Dosage: BID-TID PO
     Route: 048
     Dates: start: 20081022, end: 20081023

REACTIONS (9)
  - CONDITION AGGRAVATED [None]
  - CONJUNCTIVAL DISORDER [None]
  - DYSPHAGIA [None]
  - EYE SWELLING [None]
  - OCULAR HYPERAEMIA [None]
  - ORAL DISORDER [None]
  - ORAL PAIN [None]
  - PYREXIA [None]
  - STEVENS-JOHNSON SYNDROME [None]
